FAERS Safety Report 8248597-8 (Version None)
Quarter: 2012Q1

REPORT INFORMATION
  Report Type: 
  Country: None (occurrence: None)
  Receive Date: 20120330
  Receipt Date: 20120323
  Transmission Date: 20120608
  Serious: Yes (Other)
  Sender: FDA-Public Use
  Company Number: KR-ASTRAZENECA-2012SE19678

PATIENT
  Age: 26 Year
  Sex: Male

DRUGS (3)
  1. MEPIVACAINE HCL [Suspect]
     Route: 008
  2. TRIAMCINOLONE [Suspect]
     Dosage: 40 MG/ML
     Route: 008
  3. SALINE [Suspect]
     Dosage: 5 ML
     Route: 008

REACTIONS (1)
  - GUILLAIN-BARRE SYNDROME [None]
